FAERS Safety Report 7638561-1 (Version None)
Quarter: 2011Q3

REPORT INFORMATION
  Report Type: 
  Country: None (occurrence: None)
  Receive Date: 20110727
  Receipt Date: 20110719
  Transmission Date: 20111222
  Serious: Yes (Other)
  Sender: FDA-Public Use
  Company Number: PHHY2010JP35317

PATIENT
  Age: 40 Year
  Sex: Female

DRUGS (1)
  1. RITALIN [Suspect]
     Indication: NARCOLEPSY
     Dosage: 20 MG, PER DAY
     Route: 048
     Dates: end: 20100517

REACTIONS (1)
  - MATERNAL EXPOSURE DURING PREGNANCY [None]
